FAERS Safety Report 21613957 (Version 1)
Quarter: 2022Q4

REPORT INFORMATION
  Report Type: Report from Study
  Country: US (occurrence: US)
  Receive Date: 20221118
  Receipt Date: 20221118
  Transmission Date: 20230113
  Serious: No
  Sender: FDA-Public Use
  Company Number: US-ABBVIE-4197600

PATIENT
  Age: 67 Year
  Sex: Male

DRUGS (6)
  1. CARBIDOPA\LEVODOPA [Suspect]
     Active Substance: CARBIDOPA\LEVODOPA
     Indication: Product used for unknown indication
     Route: 050
     Dates: start: 20200303
  2. CARBIDOPA\LEVODOPA [Suspect]
     Active Substance: CARBIDOPA\LEVODOPA
  3. Carbidopa/Levodopa Encatapone [Concomitant]
     Indication: Product used for unknown indication
     Dosage: 12.5-50MG
     Route: 048
  4. QUETIAPINE [Concomitant]
     Active Substance: QUETIAPINE
     Indication: Product used for unknown indication
     Dosage: 100MG
     Route: 048
  5. OMEPRAZOLE [Concomitant]
     Active Substance: OMEPRAZOLE
     Indication: Product used for unknown indication
     Dosage: 10MG
     Route: 048
  6. ELIQUIS [Concomitant]
     Active Substance: APIXABAN
     Indication: Product used for unknown indication
     Dosage: 5MG
     Route: 048

REACTIONS (2)
  - Gait disturbance [Unknown]
  - Freezing phenomenon [Unknown]

NARRATIVE: CASE EVENT DATE: 20221101
